FAERS Safety Report 21556298 (Version 1)
Quarter: 2022Q4

REPORT INFORMATION
  Report Type: Spontaneous
  Country: JP (occurrence: JP)
  Receive Date: 20221104
  Receipt Date: 20221104
  Transmission Date: 20230113
  Serious: Yes (Hospitalization, Other)
  Sender: FDA-Public Use
  Company Number: JP-JNJFOC-20221041798

PATIENT
  Age: 8 Decade
  Sex: Female

DRUGS (3)
  1. ACETAMINOPHEN\TRAMADOL [Suspect]
     Active Substance: ACETAMINOPHEN\TRAMADOL
     Indication: Product used for unknown indication
     Dosage: DOSE UNKNOWN
     Route: 048
  2. ACETAMINOPHEN\TRAMADOL [Suspect]
     Active Substance: ACETAMINOPHEN\TRAMADOL
     Dosage: DOSE UNKNOWN
     Route: 048
     Dates: end: 2022
  3. ACETAMINOPHEN\TRAMADOL [Suspect]
     Active Substance: ACETAMINOPHEN\TRAMADOL
     Dosage: DOSE UNKNOWN
     Route: 048
     Dates: end: 202210

REACTIONS (3)
  - Hospitalisation [Unknown]
  - Hallucination, visual [Recovered/Resolved]
  - Visual acuity reduced [Unknown]
